FAERS Safety Report 13877702 (Version 2)
Quarter: 2017Q3

REPORT INFORMATION
  Report Type: Report from Study
  Country: FR (occurrence: FR)
  Receive Date: 20170817
  Receipt Date: 20170824
  Transmission Date: 20171127
  Serious: Yes (Hospitalization)
  Sender: FDA-Public Use
  Company Number: FR-JNJFOC-20170811543

PATIENT
  Sex: Female
  Weight: 92 kg

DRUGS (8)
  1. ROWASA [Concomitant]
     Active Substance: MESALAMINE
     Route: 065
  2. SOTALOL. [Suspect]
     Active Substance: SOTALOL
     Indication: PRODUCT USED FOR UNKNOWN INDICATION
     Route: 065
  3. LUTENYL [Concomitant]
     Active Substance: NOMEGESTROL ACETATE
     Route: 065
  4. STELARA [Suspect]
     Active Substance: USTEKINUMAB
     Indication: ANKYLOSING SPONDYLITIS
     Route: 058
     Dates: start: 201702, end: 20170706
  5. MESALAZINE [Concomitant]
     Active Substance: MESALAMINE
     Indication: COLITIS ULCERATIVE
     Route: 048
     Dates: start: 20100915
  6. LEVOTHYROX [Concomitant]
     Active Substance: LEVOTHYROXINE
     Route: 065
  7. CORTANCYL [Suspect]
     Active Substance: PREDNISONE
     Indication: SPONDYLITIS
     Route: 048
     Dates: start: 201702
  8. XYZALL [Concomitant]
     Active Substance: LEVOCETIRIZINE DIHYDROCHLORIDE
     Route: 065

REACTIONS (5)
  - Product use in unapproved indication [Unknown]
  - Pneumococcal sepsis [Unknown]
  - Acute kidney injury [Recovering/Resolving]
  - Off label use [Unknown]
  - Pneumonia pneumococcal [Unknown]

NARRATIVE: CASE EVENT DATE: 2017
